FAERS Safety Report 8013014-X (Version None)
Quarter: 2011Q4

REPORT INFORMATION
  Report Type: 
  Country: None (occurrence: None)
  Receive Date: 20111229
  Receipt Date: 20111219
  Transmission Date: 20120403
  Serious: Yes (Death, Other)
  Sender: FDA-Public Use
  Company Number: US-PFIZER INC-2011309689

PATIENT
  Age: 73 Year
  Sex: Female

DRUGS (6)
  1. PHENYTOIN [Suspect]
     Dosage: UNK
  2. GABAPENTIN [Suspect]
     Dosage: UNK
     Route: 065
  3. HYDROXYZINE [Suspect]
     Dosage: UNK
     Route: 065
  4. SERTRALINE HYDROCHLORIDE [Suspect]
     Dosage: UNK
     Route: 065
  5. METOPROLOL SUCCINATE [Suspect]
     Dosage: UNK
  6. OMEPRAZOLE [Suspect]
     Dosage: UNK
     Route: 065

REACTIONS (2)
  - DEATH [None]
  - TOXICITY TO VARIOUS AGENTS [None]
